FAERS Safety Report 7425412-3 (Version None)
Quarter: 2011Q2

REPORT INFORMATION
  Report Type: 
  Country: None (occurrence: None)
  Receive Date: 20110420
  Receipt Date: 20110411
  Transmission Date: 20111010
  Serious: Yes (Other)
  Sender: FDA-Public Use
  Company Number: US-ASTRAZENECA-2007UW19463

PATIENT
  Age: 60 Year
  Sex: Male
  Weight: 70.8 kg

DRUGS (11)
  1. SEROQUEL [Suspect]
     Route: 048
  2. CASODEX [Suspect]
     Indication: PROSTATE CANCER
     Route: 048
     Dates: start: 20070525
  3. CRESTOR [Concomitant]
     Route: 048
  4. EFFEXOR [Concomitant]
  5. PRILOSEC [Concomitant]
  6. DITROPAN [Concomitant]
  7. CLONAZEPAM [Concomitant]
  8. VITAMIN E [Concomitant]
  9. COREG [Concomitant]
  10. RHINOCORT [Suspect]
     Route: 045
  11. CALCIUM [Concomitant]

REACTIONS (4)
  - CYSTITIS [None]
  - FATIGUE [None]
  - BLOOD GLUCOSE INCREASED [None]
  - ILL-DEFINED DISORDER [None]
